FAERS Safety Report 7579653-5 (Version None)
Quarter: 2011Q2

REPORT INFORMATION
  Report Type: 
  Country: None (occurrence: None)
  Receive Date: 20110622
  Receipt Date: 20110613
  Transmission Date: 20111010
  Serious: Yes (Other)
  Sender: FDA-Public Use
  Company Number: 1000021585

PATIENT
  Age: 47 Year
  Sex: Female
  Weight: 67.6 kg

DRUGS (19)
  1. LEXAPRO [Suspect]
     Indication: DEPRESSION
     Dosage: ORAL
     Route: 048
     Dates: start: 20110201
  2. LEXAPRO [Suspect]
     Indication: OBSESSIVE-COMPULSIVE DISORDER
     Dosage: ORAL
     Route: 048
     Dates: start: 20110201
  3. LEXAPRO [Suspect]
     Indication: ANXIETY
     Dosage: ORAL
     Route: 048
     Dates: start: 20110201
  4. LEXAPRO [Suspect]
     Indication: DEPRESSION
     Dosage: ORAL
     Route: 048
     Dates: start: 20030101, end: 20110101
  5. LEXAPRO [Suspect]
     Indication: OBSESSIVE-COMPULSIVE DISORDER
     Dosage: ORAL
     Route: 048
     Dates: start: 20030101, end: 20110101
  6. LEXAPRO [Suspect]
     Indication: ANXIETY
     Dosage: ORAL
     Route: 048
     Dates: start: 20030101, end: 20110101
  7. SOMINEX (METHAPYRILENE HYDROCHLORIDE, SALICYLAMIDE, SCOPOLAMINE AMINOX [Concomitant]
  8. VENLAFAXINE HCL [Suspect]
     Indication: PANIC ATTACK
     Dosage: 37.5 MG (37.5 MG, 1 IN 1 D), ORAL; 75 MG (75 MG, 1 IN 1 D), ORAL
     Route: 048
     Dates: start: 20110323, end: 20110329
  9. VENLAFAXINE HCL [Suspect]
     Indication: ANXIETY
     Dosage: 37.5 MG (37.5 MG, 1 IN 1 D), ORAL; 75 MG (75 MG, 1 IN 1 D), ORAL
     Route: 048
     Dates: start: 20110323, end: 20110329
  10. VENLAFAXINE HCL [Suspect]
     Indication: OBSESSIVE-COMPULSIVE DISORDER
     Dosage: 37.5 MG (37.5 MG, 1 IN 1 D), ORAL; 75 MG (75 MG, 1 IN 1 D), ORAL
     Route: 048
     Dates: start: 20110323, end: 20110329
  11. VENLAFAXINE HCL [Suspect]
     Indication: PANIC ATTACK
     Dosage: 37.5 MG (37.5 MG, 1 IN 1 D), ORAL; 75 MG (75 MG, 1 IN 1 D), ORAL
     Route: 048
     Dates: start: 20110330
  12. VENLAFAXINE HCL [Suspect]
     Indication: ANXIETY
     Dosage: 37.5 MG (37.5 MG, 1 IN 1 D), ORAL; 75 MG (75 MG, 1 IN 1 D), ORAL
     Route: 048
     Dates: start: 20110330
  13. VENLAFAXINE HCL [Suspect]
     Indication: OBSESSIVE-COMPULSIVE DISORDER
     Dosage: 37.5 MG (37.5 MG, 1 IN 1 D), ORAL; 75 MG (75 MG, 1 IN 1 D), ORAL
     Route: 048
     Dates: start: 20110330
  14. PROZAC [Suspect]
     Indication: ANXIETY
     Dosage: (1 IN 1 D), ORAL
     Route: 048
     Dates: start: 19950101, end: 20010101
  15. PROZAC [Suspect]
     Indication: DEPRESSION
     Dosage: (1 IN 1 D), ORAL
     Route: 048
     Dates: start: 19950101, end: 20010101
  16. PROZAC [Suspect]
     Indication: PANIC ATTACK
     Dosage: (1 IN 1 D), ORAL
     Route: 048
     Dates: start: 19950101, end: 20010101
  17. PROZAC [Suspect]
     Indication: OBSESSIVE-COMPULSIVE DISORDER
     Dosage: (1 IN 1 D), ORAL
     Route: 048
     Dates: start: 19950101, end: 20010101
  18. TRAZODONE (TRAZODONE) (50 MILLIGRAM, TABLETS) (TRAZODONE) [Concomitant]
  19. Z-DEX 12D (DEXTROMETHORPHAN, CHLORPHENIRAMINE, PHENYLEPHRINE) (DEXTROM [Concomitant]

REACTIONS (4)
  - FATIGUE [None]
  - HYPOCAPNIA [None]
  - SEXUAL DYSFUNCTION [None]
  - WEIGHT INCREASED [None]
